FAERS Safety Report 19656110 (Version 1)
Quarter: 2021Q3

REPORT INFORMATION
  Report Type: Spontaneous
  Country: JP (occurrence: JP)
  Receive Date: 20210804
  Receipt Date: 20210804
  Transmission Date: 20211014
  Serious: Yes (Other)
  Sender: FDA-Public Use
  Company Number: JP-BIOVITRUM-2021JP7173

PATIENT
  Age: 9 Month
  Sex: Male

DRUGS (1)
  1. NITISINONE [Suspect]
     Active Substance: NITISINONE
     Indication: TYROSINAEMIA
     Route: 065

REACTIONS (4)
  - Focal nodular hyperplasia [Unknown]
  - Liver transplant [Unknown]
  - Hepatocellular carcinoma [Unknown]
  - Hepatic failure [Unknown]
